FAERS Safety Report 7575626-7 (Version None)
Quarter: 2011Q2

REPORT INFORMATION
  Report Type: 
  Country: None (occurrence: None)
  Receive Date: 20110628
  Receipt Date: 20110614
  Transmission Date: 20111010
  Serious: Yes (Other)
  Sender: FDA-Public Use
  Company Number: JP-MYLANLABS-2011S1002960

PATIENT
  Age: 36 Year
  Sex: Female
  Weight: 41.2 kg

DRUGS (10)
  1. CARBOPLATIN [Suspect]
     Route: 041
     Dates: start: 20100413, end: 20100413
  2. CARBOPLATIN [Suspect]
     Route: 041
     Dates: start: 20100810, end: 20100810
  3. SIGMART [Concomitant]
     Indication: STRESS CARDIOMYOPATHY
     Route: 048
  4. CARBOPLATIN [Suspect]
     Route: 041
     Dates: start: 20100709, end: 20100709
  5. TAXOL [Suspect]
     Indication: UTERINE CANCER
     Route: 041
     Dates: start: 20100311, end: 20100311
  6. TAXOL [Suspect]
     Route: 041
     Dates: start: 20100413, end: 20100413
  7. CARBOPLATIN [Suspect]
     Indication: UTERINE CANCER
     Route: 041
     Dates: start: 20100311, end: 20100311
  8. CARBOPLATIN [Suspect]
     Route: 041
     Dates: start: 20101019, end: 20101019
  9. CARBOPLATIN [Suspect]
     Route: 041
     Dates: start: 20100914, end: 20100914
  10. PENTASA [Concomitant]
     Indication: COLITIS ULCERATIVE
     Route: 048

REACTIONS (1)
  - ARTERIAL THROMBOSIS [None]
